FAERS Safety Report 23764994 (Version 1)
Quarter: 2024Q2

REPORT INFORMATION
  Report Type: Spontaneous
  Country: IT (occurrence: IT)
  Receive Date: 20240420
  Receipt Date: 20240420
  Transmission Date: 20240716
  Serious: Yes (Other)
  Sender: FDA-Public Use
  Company Number: None

PATIENT
  Age: 35 Year
  Sex: Male
  Weight: 56 kg

DRUGS (3)
  1. QUETIAPINE [Suspect]
     Active Substance: QUETIAPINE
     Indication: Agitated depression
     Dosage: QUETIAPINE ACC TABLET 50 MG RP: 2 TABLETS/DAY
     Dates: start: 20240312, end: 20240312
  2. ALLOPURINOL [Concomitant]
     Active Substance: ALLOPURINOL
     Indication: Blood uric acid increased
     Dosage: ZYLORIC CP DIV 300 MG
  3. VALPROATE SODIUM [Concomitant]
     Active Substance: VALPROATE SODIUM
     Dosage: DEPAKIN GRAT BUST 500 MG RM, PROLONGED-RELEASE GRANULES IN SACHET
     Dates: start: 202112

REACTIONS (3)
  - Screaming [Recovered/Resolved]
  - Aggression [Recovered/Resolved]
  - Off label use [Recovered/Resolved]

NARRATIVE: CASE EVENT DATE: 20240312
